FAERS Safety Report 7029358-4 (Version None)
Quarter: 2010Q4

REPORT INFORMATION
  Report Type: 
  Country: None (occurrence: None)
  Receive Date: 20101005
  Receipt Date: 20100921
  Transmission Date: 20110411
  Serious: Yes (Death, Hospitalization)
  Sender: FDA-Public Use
  Company Number: US-ELI_LILLY_AND_COMPANY-US201005005887

PATIENT
  Sex: Male
  Weight: 107.94 kg

DRUGS (1)
  1. ZYPREXA [Suspect]
     Indication: BIPOLAR DISORDER
     Dosage: 20 MG, EACH EVENING
     Dates: start: 20091130

REACTIONS (2)
  - COMPLETED SUICIDE [None]
  - OVERDOSE [None]
